FAERS Safety Report 17742827 (Version 1)
Quarter: 2020Q2

REPORT INFORMATION
  Report Type: Spontaneous
  Country: US (occurrence: US)
  Receive Date: 20200505
  Receipt Date: 20200505
  Transmission Date: 20200714
  Serious: No
  Sender: FDA-Public Use
  Company Number: US-BRISTOL-MYERS SQUIBB COMPANY-BMS-2020-035185

PATIENT
  Age: 4 Year

DRUGS (1)
  1. ORENCIA [Suspect]
     Active Substance: ABATACEPT
     Indication: IMMUNODEFICIENCY
     Dosage: 250 MILLIGRAM, Q2WK
     Route: 042

REACTIONS (1)
  - Intentional product use issue [Unknown]
